FAERS Safety Report 24909391 (Version 1)
Quarter: 2025Q1

REPORT INFORMATION
  Report Type: Spontaneous
  Country: EE (occurrence: EE)
  Receive Date: 20250131
  Receipt Date: 20250131
  Transmission Date: 20250408
  Serious: Yes (Congenital Anomaly)
  Sender: EMD SERONO INC
  Company Number: EE-Merck Healthcare KGaA-2025004107

PATIENT
  Sex: Male
  Weight: 4 kg

DRUGS (1)
  1. MAVENCLAD [Suspect]
     Active Substance: CLADRIBINE
     Indication: Multiple sclerosis

REACTIONS (1)
  - Patent ductus arteriosus [Unknown]
